FAERS Safety Report 21609090 (Version 5)
Quarter: 2023Q4

REPORT INFORMATION
  Report Type: Spontaneous
  Country: US (occurrence: US)
  Receive Date: 20221117
  Receipt Date: 20231024
  Transmission Date: 20240110
  Serious: No
  Sender: FDA-Public Use
  Company Number: US-PFIZER INC-202200866822

PATIENT
  Age: 69 Year
  Sex: Male

DRUGS (2)
  1. CAVERJECT [Suspect]
     Active Substance: ALPROSTADIL
     Dosage: 20 UG
  2. CAVERJECT [Suspect]
     Active Substance: ALPROSTADIL
     Dosage: 40 UG

REACTIONS (5)
  - Drug ineffective [Unknown]
  - Product preparation issue [Unknown]
  - Intentional product use issue [Unknown]
  - Product confusion [Unknown]
  - Feeling abnormal [Unknown]
